FAERS Safety Report 6825601-2 (Version None)
Quarter: 2010Q3

REPORT INFORMATION
  Report Type: 
  Country: None (occurrence: None)
  Receive Date: 20100708
  Receipt Date: 20080924
  Transmission Date: 20110219
  Serious: No
  Sender: FDA-Public Use
  Company Number: US-PFIZER INC-2006125959

PATIENT
  Sex: Female
  Weight: 77.1 kg

DRUGS (4)
  1. CHANTIX [Suspect]
     Indication: SMOKING CESSATION THERAPY
     Dates: start: 20060923
  2. LEXAPRO [Concomitant]
  3. LIPITOR [Concomitant]
  4. METHADONE [Concomitant]

REACTIONS (8)
  - ABDOMINAL DISCOMFORT [None]
  - DRUG INEFFECTIVE [None]
  - FATIGUE [None]
  - GASTRIC DISORDER [None]
  - LETHARGY [None]
  - NAUSEA [None]
  - POOR QUALITY SLEEP [None]
  - WEIGHT INCREASED [None]
